FAERS Safety Report 8246014-5 (Version None)
Quarter: 2012Q1

REPORT INFORMATION
  Report Type: 
  Country: None (occurrence: None)
  Receive Date: 20120328
  Receipt Date: 20120328
  Transmission Date: 20120608
  Serious: Yes (Other)
  Sender: FDA-Public Use
  Company Number: None

PATIENT
  Age: 60 Year
  Sex: Female
  Weight: 65.7716 kg

DRUGS (1)
  1. TRILIPIX [Suspect]
     Indication: HYPERLIPIDAEMIA
     Dosage: 45 MG PO
     Route: 048

REACTIONS (3)
  - PRURITUS [None]
  - FEELING HOT [None]
  - ERYTHEMA [None]
